FAERS Safety Report 21684910 (Version 2)
Quarter: 2024Q3

REPORT INFORMATION
  Report Type: Spontaneous
  Country: PT (occurrence: PT)
  Receive Date: 20221205
  Receipt Date: 20240925
  Transmission Date: 20241017
  Serious: Yes (Hospitalization, Other)
  Sender: PIRAMAL
  Company Number: PT-PIRAMAL CRITICAL CARE LIMITED-2022-PEL-000709

PATIENT

DRUGS (1)
  1. SEVOFLURANE [Suspect]
     Active Substance: SEVOFLURANE
     Indication: Product used for unknown indication
     Dosage: UNK

REACTIONS (3)
  - Pulmonary alveolar haemorrhage [Recovered/Resolved]
  - Negative pressure pulmonary oedema [Recovered/Resolved]
  - Capillaritis [Recovered/Resolved]
